FAERS Safety Report 6293548-9 (Version None)
Quarter: 2009Q3

REPORT INFORMATION
  Report Type: 
  Country: None (occurrence: None)
  Receive Date: 20090803
  Receipt Date: 20090723
  Transmission Date: 20100115
  Serious: Yes (Life-Threatening, Hospitalization)
  Sender: FDA-Public Use
  Company Number: FR-BRISTOL-MYERS SQUIBB COMPANY-14721989

PATIENT
  Age: 62 Year
  Sex: Female

DRUGS (5)
  1. GLUCOVANCE [Suspect]
     Indication: DIABETES MELLITUS
     Route: 048
     Dates: end: 20090524
  2. METFORMIN HCL [Suspect]
     Indication: DIABETES MELLITUS
     Dosage: METFORMIN MYLAN TABLET 1000 MG
     Route: 048
     Dates: end: 20090524
  3. LASIX [Suspect]
     Indication: ACUTE PULMONARY OEDEMA
     Dosage: SOLUTION FOR INJECTION
     Route: 042
     Dates: start: 20090516, end: 20090526
  4. ODRIK [Suspect]
     Indication: HYPERTENSION
     Route: 048
     Dates: start: 20090515, end: 20090524
  5. PLAVIX [Concomitant]

REACTIONS (2)
  - LACTIC ACIDOSIS [None]
  - RENAL FAILURE ACUTE [None]
